FAERS Safety Report 13912383 (Version 1)
Quarter: 2017Q3

REPORT INFORMATION
  Report Type: Spontaneous
  Country: US (occurrence: US)
  Receive Date: 20170828
  Receipt Date: 20170828
  Transmission Date: 20171127
  Serious: Yes (Hospitalization, Other)
  Sender: FDA-Public Use
  Company Number: US-VALIDUS PHARMACEUTICALS LLC-US-2017VAL001274

PATIENT
  Age: 53 Year
  Sex: Female

DRUGS (2)
  1. FUROSEMIDE. [Suspect]
     Active Substance: FUROSEMIDE
     Indication: HYPERTENSION
     Dosage: 25 MG, QD
     Route: 065
  2. CAPTOPRIL. [Concomitant]
     Active Substance: CAPTOPRIL
     Indication: PRODUCT USED FOR UNKNOWN INDICATION
     Dosage: UNK

REACTIONS (11)
  - Seizure [Recovered/Resolved]
  - Muscle spasms [Recovered/Resolved]
  - Electrocardiogram QT prolonged [Recovered/Resolved]
  - Azotaemia [Recovered/Resolved]
  - Hypomagnesaemia [Recovered/Resolved]
  - Hypocalcaemia [Recovered/Resolved]
  - Blood pressure increased [Recovered/Resolved]
  - Tetany [Recovered/Resolved]
  - Atrioventricular block first degree [Recovered/Resolved]
  - Paraesthesia [Recovered/Resolved]
  - Sinus tachycardia [Recovered/Resolved]
